FAERS Safety Report 22329382 (Version 2)
Quarter: 2023Q2

REPORT INFORMATION
  Report Type: Spontaneous
  Country: US (occurrence: US)
  Receive Date: 20230517
  Receipt Date: 20230523
  Transmission Date: 20230721
  Serious: No
  Sender: FDA-Public Use
  Company Number: US-002147023-NVSC2023US109791

PATIENT
  Sex: Male

DRUGS (1)
  1. KESIMPTA [Suspect]
     Active Substance: OFATUMUMAB
     Indication: Multiple sclerosis
     Dosage: 1 DOSAGE FORM, QW
     Route: 065
     Dates: start: 202303

REACTIONS (3)
  - Skin exfoliation [Unknown]
  - Rash [Unknown]
  - Blister [Unknown]
